FAERS Safety Report 14540473 (Version 2)
Quarter: 2018Q1

REPORT INFORMATION
  Report Type: Spontaneous
  Country: JP (occurrence: JP)
  Receive Date: 20180216
  Receipt Date: 20180306
  Transmission Date: 20180509
  Serious: Yes (Hospitalization, Other)
  Sender: FDA-Public Use
  Company Number: JP-GLAXOSMITHKLINE-JP2017JPN150726

PATIENT
  Age: 75 Year
  Sex: Female
  Weight: 34 kg

DRUGS (5)
  1. LAMICTAL [Suspect]
     Active Substance: LAMOTRIGINE
     Indication: EPILEPSY
     Dosage: 25 MG, QD
     Route: 048
     Dates: start: 20170822, end: 20170908
  2. LAMICTAL [Suspect]
     Active Substance: LAMOTRIGINE
     Dosage: 50 MG, QD
     Route: 048
     Dates: start: 20170908, end: 20170920
  3. MAGMITT [Concomitant]
     Active Substance: MAGNESIUM OXIDE
     Dosage: UNK
  4. YOKUKANSAN [Concomitant]
     Active Substance: HERBALS
     Dosage: UNK
  5. CLOPIDOGREL SULFATE [Concomitant]
     Active Substance: CLOPIDOGREL BISULFATE
     Dosage: UNK

REACTIONS (13)
  - Erythema multiforme [Recovered/Resolved]
  - Eye discharge [Unknown]
  - Epidermal necrosis [Recovered/Resolved]
  - Blister [Unknown]
  - Skin erosion [Unknown]
  - Stevens-Johnson syndrome [Recovered/Resolved]
  - Ocular hyperaemia [Unknown]
  - Vulval disorder [Unknown]
  - Lip erosion [Unknown]
  - Erythema of eyelid [Unknown]
  - Oral mucosa erosion [Unknown]
  - Pyrexia [Unknown]
  - Lymphadenopathy [Unknown]

NARRATIVE: CASE EVENT DATE: 20170920
